FAERS Safety Report 22229324 (Version 1)
Quarter: 2023Q2

REPORT INFORMATION
  Report Type: Spontaneous
  Country: US (occurrence: US)
  Receive Date: 20230419
  Receipt Date: 20230419
  Transmission Date: 20230722
  Serious: No
  Sender: FDA-Public Use
  Company Number: US-ALLERGAN-2221318US

PATIENT
  Sex: Female
  Weight: 61.68 kg

DRUGS (9)
  1. RESTASIS [Suspect]
     Active Substance: CYCLOSPORINE
     Indication: Dry eye
     Dosage: 2 GTT, BID, TOPICAL
     Route: 047
     Dates: start: 2021, end: 20220629
  2. SYNTHROID [Concomitant]
     Active Substance: LEVOTHYROXINE SODIUM
     Indication: Hypothyroidism
     Dosage: MORE THAN 20 YEARS DURATION
  3. DIAZEPAM [Concomitant]
     Active Substance: DIAZEPAM
     Indication: Insomnia
     Dosage: 5 MG
  4. DIAZEPAM [Concomitant]
     Active Substance: DIAZEPAM
     Indication: Muscle spasms
  5. DIAZEPAM [Concomitant]
     Active Substance: DIAZEPAM
     Indication: Myalgia
  6. COVID-19 VACCINE [Concomitant]
     Indication: COVID-19 immunisation
     Dosage: UNK, SINGLE
     Route: 030
     Dates: start: 20210317, end: 20210317
  7. COVID-19 VACCINE [Concomitant]
     Dosage: UNK, SINGLE
     Route: 030
     Dates: start: 20210407, end: 20210407
  8. COVID-19 VACCINE [Concomitant]
     Dosage: UNK, SINGLE
     Route: 030
     Dates: start: 20211106, end: 20211106
  9. COVID-19 VACCINE [Concomitant]
     Dosage: UNK, SINGLE
     Route: 030
     Dates: start: 20220516, end: 20220516

REACTIONS (6)
  - Skin depigmentation [Not Recovered/Not Resolved]
  - Hypertonic bladder [Not Recovered/Not Resolved]
  - Condition aggravated [Not Recovered/Not Resolved]
  - Accidental exposure to product [Unknown]
  - Off label use [Unknown]
  - Therapy cessation [Unknown]

NARRATIVE: CASE EVENT DATE: 20220101
